FAERS Safety Report 5657462-1 (Version None)
Quarter: 2008Q1

REPORT INFORMATION
  Report Type: 
  Country: None (occurrence: None)
  Receive Date: 20080310
  Receipt Date: 20080227
  Transmission Date: 20080703
  Serious: Yes (Hospitalization, Other)
  Sender: FDA-Public Use
  Company Number: FR-ELI_LILLY_AND_COMPANY-FR200802006857

PATIENT
  Age: 68 Year
  Sex: Female

DRUGS (1)
  1. OPTRUMA [Suspect]
     Indication: OSTEOPOROSIS
     Dosage: 1 D/F, DAILY (1/D)
     Route: 048
     Dates: start: 20050101, end: 20080201

REACTIONS (1)
  - RETINAL VEIN THROMBOSIS [None]
